FAERS Safety Report 24914025 (Version 2)
Quarter: 2025Q1

REPORT INFORMATION
  Report Type: Spontaneous
  Country: GB (occurrence: GB)
  Receive Date: 20250202
  Receipt Date: 20250205
  Transmission Date: 20250409
  Serious: Yes (Other)
  Sender: MERCK
  Company Number: GB-009507513-2501GBR011433

PATIENT
  Age: 58 Year
  Sex: Male

DRUGS (2)
  1. PEMBROLIZUMAB [Suspect]
     Active Substance: PEMBROLIZUMAB
     Indication: Renal cell carcinoma
  2. LENVATINIB MESYLATE [Suspect]
     Active Substance: LENVATINIB MESYLATE
     Indication: Renal cell carcinoma
     Route: 048

REACTIONS (6)
  - Atrial fibrillation [Unknown]
  - Immune-mediated myocarditis [Unknown]
  - Malaise [Unknown]
  - Blood pressure increased [Unknown]
  - Palpitations [Unknown]
  - Dizziness [Unknown]
